FAERS Safety Report 6180225-8 (Version None)
Quarter: 2009Q2

REPORT INFORMATION
  Report Type: 
  Country: None (occurrence: None)
  Receive Date: 20090504
  Receipt Date: 20090421
  Transmission Date: 20091009
  Serious: Yes (Other)
  Sender: FDA-Public Use
  Company Number: A-US2007-18553

PATIENT
  Age: 49 Year
  Sex: Female

DRUGS (3)
  1. TRACLEER [Suspect]
     Indication: PULMONARY ARTERIAL HYPERTENSION
     Dosage: 125 MG, BID, ORAL;  62.5 MG, BID,  ORAL
     Route: 048
     Dates: start: 20030101
  2. TRACLEER [Suspect]
     Indication: PULMONARY ARTERIAL HYPERTENSION
     Dosage: 125 MG, BID, ORAL;  62.5 MG, BID,  ORAL
     Route: 048
     Dates: start: 20040426
  3. COUMADIN [Concomitant]

REACTIONS (3)
  - DYSPNOEA [None]
  - PROTHROMBIN TIME PROLONGED [None]
  - UTERINE HAEMORRHAGE [None]
